FAERS Safety Report 7217992-8 (Version None)
Quarter: 2011Q1

REPORT INFORMATION
  Report Type: 
  Country: None (occurrence: None)
  Receive Date: 20110110
  Receipt Date: 20110106
  Transmission Date: 20110831
  Serious: Yes (Hospitalization)
  Sender: FDA-Public Use
  Company Number: B0692286A

PATIENT
  Age: 90 Year
  Sex: Male

DRUGS (8)
  1. TRIATEC [Concomitant]
     Dosage: 1.25MG TWICE PER DAY
     Route: 065
     Dates: end: 20101208
  2. KEPPRA [Suspect]
     Dosage: 250MG TWICE PER DAY
     Route: 048
     Dates: start: 20101205, end: 20101208
  3. LAMICTAL [Suspect]
     Route: 048
     Dates: start: 20101209
  4. BISOPROLOL FUMARATE [Concomitant]
     Dosage: 10MG PER DAY
     Route: 065
  5. COUMADIN [Concomitant]
     Route: 065
     Dates: end: 20101205
  6. DIGOXINE [Concomitant]
     Route: 065
     Dates: end: 20101205
  7. ADANCOR [Concomitant]
     Dosage: 10MG TWICE PER DAY
     Route: 065
  8. VASTEN [Concomitant]
     Dosage: 20MG PER DAY
     Route: 065

REACTIONS (4)
  - ENDOCARDITIS [None]
  - VASCULITIS [None]
  - OEDEMA [None]
  - THROMBOCYTOPENIA [None]
